FAERS Safety Report 8303551-2 (Version None)
Quarter: 2012Q2

REPORT INFORMATION
  Report Type: 
  Country: None (occurrence: None)
  Receive Date: 20120418
  Receipt Date: 20120411
  Transmission Date: 20120825
  Serious: Yes (Life-Threatening, Hospitalization, Disabling)
  Sender: FDA-Public Use
  Company Number: 2012SP019235

PATIENT
  Age: 54 Year
  Sex: Male
  Weight: 95 kg

DRUGS (3)
  1. RIBAVIRIN [Suspect]
     Indication: HEPATITIS C
     Dosage: 200 MG
  2. BOCEPREVIR (SCH-503034) [Suspect]
     Indication: HEPATITIS C
     Dosage: 200 MG
  3. INTERFERON [Suspect]
     Indication: HEPATITIS C

REACTIONS (7)
  - BLOOD CREATINE PHOSPHOKINASE INCREASED [None]
  - RESPIRATORY FAILURE [None]
  - DEPRESSION [None]
  - INCORRECT DOSE ADMINISTERED [None]
  - TOXICITY TO VARIOUS AGENTS [None]
  - SUICIDE ATTEMPT [None]
  - PNEUMONIA ASPIRATION [None]
